FAERS Safety Report 22192978 (Version 1)
Quarter: 2023Q2

REPORT INFORMATION
  Report Type: Spontaneous
  Country: US (occurrence: US)
  Receive Date: 20230410
  Receipt Date: 20230410
  Transmission Date: 20230721
  Serious: No
  Sender: FDA-Public Use
  Company Number: US-THEA-2023000065

PATIENT
  Age: 74 Year
  Sex: Female

DRUGS (1)
  1. TAFLUPROST OPHTHALMIC [Suspect]
     Active Substance: TAFLUPROST
     Indication: Glaucoma
     Dosage: EACH EYE
     Route: 047
     Dates: start: 202212

REACTIONS (1)
  - Eye irritation [Unknown]

NARRATIVE: CASE EVENT DATE: 20221201
